FAERS Safety Report 7065628-1 (Version None)
Quarter: 2010Q4

REPORT INFORMATION
  Report Type: 
  Country: None (occurrence: None)
  Receive Date: 20101022
  Receipt Date: 20101022
  Transmission Date: 20110411
  Serious: No
  Sender: FDA-Public Use
  Company Number: None

PATIENT
  Sex: Female

DRUGS (2)
  1. LAMOTRIGINE [Suspect]
     Indication: BIPOLAR DISORDER
     Dosage: 200 MG QAM 10/08-10/09 - NO PROBLEM 10/09 - ^BAD TASTE^ BEGAN
     Dates: start: 20091001, end: 20091001
  2. LAMOTRIGINE [Suspect]
     Indication: BIPOLAR DISORDER
     Dosage: 200 MG QAM 10/08-10/09 - NO PROBLEM 10/09 - ^BAD TASTE^ BEGAN
     Dates: start: 20091001

REACTIONS (4)
  - IDIOSYNCRATIC DRUG REACTION [None]
  - PRODUCT TASTE ABNORMAL [None]
  - RETCHING [None]
  - VOMITING [None]
